FAERS Safety Report 19738863 (Version 1)
Quarter: 2021Q3

REPORT INFORMATION
  Report Type: Spontaneous
  Country: CN (occurrence: CN)
  Receive Date: 20210824
  Receipt Date: 20210824
  Transmission Date: 20211014
  Serious: Yes (Life-Threatening, Hospitalization, Other)
  Sender: FDA-Public Use
  Company Number: CN-LUPIN PHARMACEUTICALS INC.-2021-15484

PATIENT
  Age: 24 Year
  Sex: Female

DRUGS (4)
  1. LEVETIRACETAM. [Suspect]
     Active Substance: LEVETIRACETAM
     Dosage: UNK UNK, BID
     Route: 065
  2. VANCOMYCIN [Suspect]
     Active Substance: VANCOMYCIN
     Indication: MENINGITIS BACTERIAL
     Dosage: UNK UNK, TID (1.0, INTRAVENOUS DRIP, EVERY HOURS)
     Route: 042
  3. MEROPENEM. [Suspect]
     Active Substance: MEROPENEM
     Indication: MENINGITIS BACTERIAL
     Dosage: UNK UNK, TID (2.0, INTRAVENOUS DRIP, EVERY HOURS)
     Route: 042
  4. LINEZOLID. [Suspect]
     Active Substance: LINEZOLID
     Indication: MENINGITIS BACTERIAL
     Dosage: 0.6 GRAM, BID
     Route: 042

REACTIONS (2)
  - Immune reconstitution inflammatory syndrome [Recovered/Resolved]
  - Exposure during pregnancy [Unknown]
